FAERS Safety Report 11456984 (Version 3)
Quarter: 2016Q2

REPORT INFORMATION
  Report Type: Spontaneous
  Country: CH (occurrence: CH)
  Receive Date: 20150904
  Receipt Date: 20160415
  Transmission Date: 20160815
  Serious: Yes (Other)
  Sender: FDA-Public Use
  Company Number: PHHY2015CH080311

PATIENT
  Age: 65 Year
  Sex: Female

DRUGS (8)
  1. COSENTYX [Suspect]
     Active Substance: SECUKINUMAB
     Dosage: 300 MG, QMO
     Route: 058
     Dates: start: 20150410, end: 20150529
  2. RIFAMPICIN [Concomitant]
     Active Substance: RIFAMPIN
     Indication: PRODUCT USED FOR UNKNOWN INDICATION
     Dosage: 6 MONTHS
     Route: 065
  3. OMEPRAZOLE. [Concomitant]
     Active Substance: OMEPRAZOLE
     Indication: PRODUCT USED FOR UNKNOWN INDICATION
     Dosage: 20 MG, QD
     Route: 048
  4. COSENTYX [Suspect]
     Active Substance: SECUKINUMAB
     Indication: PSORIASIS
     Dosage: 300 MG, UNK
     Route: 058
  5. ISONIAZID. [Suspect]
     Active Substance: ISONIAZID
     Indication: MYCOBACTERIUM TUBERCULOSIS COMPLEX TEST
     Dosage: 300 MG, QD
     Route: 048
     Dates: start: 20150312, end: 20150701
  6. ISONIAZID. [Suspect]
     Active Substance: ISONIAZID
     Route: 065
     Dates: start: 20150805
  7. BENADON [Suspect]
     Active Substance: PYRIDOXINE HYDROCHLORIDE
     Indication: MYCOBACTERIUM TUBERCULOSIS COMPLEX TEST
     Dosage: 150 MG, QW3
     Route: 048
     Dates: start: 20150312, end: 20150701
  8. BENADON [Suspect]
     Active Substance: PYRIDOXINE HYDROCHLORIDE
     Route: 065
     Dates: start: 20150805

REACTIONS (20)
  - Hepatic enzyme increased [Unknown]
  - Hepatic enzyme increased [Recovered/Resolved]
  - Alanine aminotransferase increased [Unknown]
  - Blood lactate dehydrogenase increased [Unknown]
  - Protein total increased [Unknown]
  - Malaise [Unknown]
  - Globulins increased [Unknown]
  - Psoriasis [Unknown]
  - Nausea [Unknown]
  - Blood thyroid stimulating hormone increased [Unknown]
  - Blood albumin decreased [Unknown]
  - Blood uric acid increased [Unknown]
  - Blood glucose increased [Unknown]
  - Fatigue [Unknown]
  - Hepatitis [Unknown]
  - Aspartate aminotransferase increased [Unknown]
  - Blood creatinine increased [Unknown]
  - Disease recurrence [Unknown]
  - Gamma-glutamyltransferase increased [Unknown]
  - C-reactive protein increased [Unknown]

NARRATIVE: CASE EVENT DATE: 20150430
